FAERS Safety Report 7598693-3 (Version None)
Quarter: 2011Q3

REPORT INFORMATION
  Report Type: 
  Country: None (occurrence: None)
  Receive Date: 20110711
  Receipt Date: 20110630
  Transmission Date: 20111222
  Serious: Yes (Hospitalization)
  Sender: FDA-Public Use
  Company Number: US-BIOGENIDEC-2011BI016621

PATIENT
  Age: 75 Year
  Sex: Female

DRUGS (3)
  1. AVONEX [Suspect]
     Indication: MULTIPLE SCLEROSIS
     Route: 030
     Dates: start: 20060303
  2. BLOOD THINNERS (NOS) [Concomitant]
  3. AVONEX [Suspect]
     Route: 030
     Dates: start: 20020801

REACTIONS (6)
  - BONE EROSION [None]
  - BONE DEFORMITY [None]
  - HAEMORRHAGIC DISORDER [None]
  - OEDEMA MOUTH [None]
  - DEVICE RELATED INFECTION [None]
  - STOMATITIS [None]
